FAERS Safety Report 15736346 (Version 1)
Quarter: 2018Q4

REPORT INFORMATION
  Report Type: Spontaneous
  Country: US (occurrence: US)
  Receive Date: 20181218
  Receipt Date: 20181218
  Transmission Date: 20190205
  Serious: Yes (Hospitalization, Disabling)
  Sender: FDA-Public Use
  Company Number: None

PATIENT
  Age: 63 Year
  Sex: Female
  Weight: 50.1 kg

DRUGS (2)
  1. PROLIA [Suspect]
     Active Substance: DENOSUMAB
     Indication: OSTEOPOROSIS
     Dosage: ?          OTHER FREQUENCY:EVERY 6 MONTHS;?
     Route: 058
  2. PENICILLIN G POTASSIUM 20 MILLION UNITS (OSTEOMYELITIS) [Concomitant]

REACTIONS (3)
  - Lymphadenopathy [None]
  - Osteonecrosis [None]
  - Osteomyelitis [None]

NARRATIVE: CASE EVENT DATE: 20180723
